FAERS Safety Report 7494445 (Version 5)
Quarter: 2013Q1

REPORT INFORMATION
  Report Type: Spontaneous
  Country: US (occurrence: US)
  Receive Date: 20100722
  Receipt Date: 20130307
  Transmission Date: 20140127
  Serious: Yes (Other)
  Sender: FDA-Public Use
  Company Number: US-BIOGENIDEC-2010BI024316

PATIENT
  Age: 47 Year
  Sex: Female

DRUGS (19)
  1. TYSABRI [Suspect]
     Indication: MULTIPLE SCLEROSIS
     Route: 042
     Dates: start: 200910
  2. TYSABRI [Suspect]
     Indication: MULTIPLE SCLEROSIS
     Route: 042
     Dates: start: 20100708
  3. AMPYRA [Concomitant]
     Indication: GAIT DISTURBANCE
     Route: 048
     Dates: start: 20100518, end: 20100605
  4. AMPYRA [Concomitant]
     Indication: GAIT DISTURBANCE
     Route: 048
     Dates: start: 20100608
  5. PROCET [Concomitant]
     Indication: PAIN
  6. LISINOPRIL [Concomitant]
     Indication: PRODUCT USED FOR UNKNOWN INDICATION
  7. ALBUTEROL SULFATE [Concomitant]
     Indication: PRODUCT USED FOR UNKNOWN INDICATION
  8. BACLOFEN [Concomitant]
     Indication: PRODUCT USED FOR UNKNOWN INDICATION
     Route: 048
  9. WELLBUTRIN [Concomitant]
     Indication: PRODUCT USED FOR UNKNOWN INDICATION
  10. FLONASE [Concomitant]
     Indication: PRODUCT USED FOR UNKNOWN INDICATION
  11. HYDROCHLOROTHIAZIDE [Concomitant]
     Indication: PRODUCT USED FOR UNKNOWN INDICATION
     Route: 048
  12. INEXIUM [Concomitant]
     Indication: PRODUCT USED FOR UNKNOWN INDICATION
  13. SUMATRIPTAN [Concomitant]
     Indication: MIGRAINE
  14. VALIUM [Concomitant]
     Indication: PRODUCT USED FOR UNKNOWN INDICATION
  15. ARMODAFINIL [Concomitant]
     Indication: PRODUCT USED FOR UNKNOWN INDICATION
     Route: 048
  16. BETASERON [Concomitant]
     Indication: PRODUCT USED FOR UNKNOWN INDICATION
     Route: 058
  17. CO-GESIC [Concomitant]
     Indication: PAIN
  18. AMBIEN [Concomitant]
     Indication: SLEEP DISORDER
  19. K-DUR [Concomitant]

REACTIONS (17)
  - Multiple sclerosis relapse [Recovered/Resolved]
  - Tremor [Not Recovered/Not Resolved]
  - Fatigue [Unknown]
  - Stress [Unknown]
  - Nausea [Recovered/Resolved]
  - Pain in extremity [Unknown]
  - Headache [Unknown]
  - Muscular weakness [Unknown]
  - Syncope [Recovered/Resolved]
  - Hypotension [Recovered/Resolved]
  - Fluid retention [Recovered/Resolved]
  - Poor venous access [Recovered/Resolved]
  - Drug effect decreased [Recovered/Resolved]
  - Catheter site swelling [Recovered/Resolved]
  - Infusion site scar [Recovered/Resolved]
  - Memory impairment [Recovered/Resolved]
  - Back pain [Recovered/Resolved]
